FAERS Safety Report 15460314 (Version 1)
Quarter: 2018Q4

REPORT INFORMATION
  Report Type: Report from Study
  Country: US (occurrence: US)
  Receive Date: 20181003
  Receipt Date: 20181003
  Transmission Date: 20190204
  Serious: Yes (Hospitalization)
  Sender: FDA-Public Use
  Company Number: US-JNJFOC-20180937155

PATIENT
  Age: 80 Year
  Sex: Male

DRUGS (12)
  1. IMBRUVICA [Concomitant]
     Active Substance: IBRUTINIB
     Indication: DIFFUSE LARGE B-CELL LYMPHOMA
     Route: 048
     Dates: start: 20170211
  2. ATENOLOL. [Concomitant]
     Active Substance: ATENOLOL
  3. AMBIEN [Concomitant]
     Active Substance: ZOLPIDEM TARTRATE
  4. SIMVASTATIN. [Concomitant]
     Active Substance: SIMVASTATIN
  5. EDARBYCLOR [Concomitant]
     Active Substance: AZILSARTAN KAMEDOXOMIL\CHLORTHALIDONE
  6. RANEXA [Concomitant]
     Active Substance: RANOLAZINE
  7. CELEBREX [Concomitant]
     Active Substance: CELECOXIB
  8. SYNTHROID [Concomitant]
     Active Substance: LEVOTHYROXINE SODIUM
  9. ASPIRIN. [Concomitant]
     Active Substance: ASPIRIN
  10. LOSARTAN. [Concomitant]
     Active Substance: LOSARTAN
  11. SYMBICORT [Concomitant]
     Active Substance: BUDESONIDE\FORMOTEROL FUMARATE DIHYDRATE
  12. IMBRUVICA [Suspect]
     Active Substance: IBRUTINIB
     Indication: DIFFUSE LARGE B-CELL LYMPHOMA
     Route: 048
     Dates: start: 20180407, end: 2018

REACTIONS (5)
  - Product use in unapproved indication [Unknown]
  - Pancreatitis [Unknown]
  - Off label use [Unknown]
  - Colitis [Unknown]
  - Clostridium difficile infection [Unknown]

NARRATIVE: CASE EVENT DATE: 20180407
